FAERS Safety Report 15377275 (Version 2)
Quarter: 2018Q3

REPORT INFORMATION
  Report Type: Spontaneous
  Country: US (occurrence: US)
  Receive Date: 20180913
  Receipt Date: 20180918
  Transmission Date: 20181010
  Serious: No
  Sender: FDA-Public Use
  Company Number: US-PFIZER INC-2016572663

PATIENT
  Age: 82 Year
  Sex: Female
  Weight: 77.98 kg

DRUGS (19)
  1. FLOVENT HFA [Concomitant]
     Active Substance: FLUTICASONE PROPIONATE
     Dosage: 110 UG, ONCE A DAY
  2. VIT B COMPLEX [Concomitant]
     Dosage: UNK
  3. CALCIUM CITRATE MALATE WITH D3 [Concomitant]
     Dosage: 100 MG, UNK
  4. ETODOLAC. [Concomitant]
     Active Substance: ETODOLAC
     Dosage: 400 MG, TWICE A DAY
  5. LORATADINE. [Concomitant]
     Active Substance: LORATADINE
     Dosage: 10 MG, ONCE A DAY
  6. LOSARTIN [Concomitant]
     Active Substance: LOSARTAN
     Dosage: 100 MG, DAILY
  7. EVOA [Concomitant]
     Indication: MACULAR DEGENERATION
     Dosage: 1 CAPSULE (DF), TWICE A DAY
  8. VITAMIN D3 [Concomitant]
     Active Substance: CHOLECALCIFEROL
     Dosage: 2000 IU, ONCE A DAY
  9. LYRICA [Suspect]
     Active Substance: PREGABALIN
     Indication: NEUROPATHY PERIPHERAL
  10. DOXAZOSIN [Concomitant]
     Active Substance: DOXAZOSIN\DOXAZOSIN MESYLATE
     Dosage: 2 MG, DAILY
  11. LIPOFLAVONOID [ASCORBIC ACID;BIOFLAVONOIDS;CHOLINE BITARTRATE;DEXPANTH [Concomitant]
     Indication: TINNITUS
     Dosage: UNK, TWICE A DAY
  12. LIPOFLAVONOID [ASCORBIC ACID;BIOFLAVONOIDS;CHOLINE BITARTRATE;DEXPANTH [Concomitant]
     Indication: MENIERE^S DISEASE
  13. LYRICA [Suspect]
     Active Substance: PREGABALIN
     Indication: BACK DISORDER
     Dosage: 75 MG, 2X/DAY
     Route: 048
  14. FUROSEMIDE. [Concomitant]
     Active Substance: FUROSEMIDE
     Dosage: 20 MG, DAILY
  15. DIAZEPAM. [Concomitant]
     Active Substance: DIAZEPAM
     Indication: VERTIGO
     Dosage: 2 MG, UNK
  16. CITALOPRAM [Concomitant]
     Active Substance: CITALOPRAM HYDROBROMIDE
     Dosage: 20 MG, DAILY
  17. MYRBETRIQ [Concomitant]
     Active Substance: MIRABEGRON
     Dosage: 50 MG, DAILY
  18. IRON [Concomitant]
     Active Substance: IRON
     Dosage: 65 MG, DAILY
  19. ALENDRONATE SODIUM. [Concomitant]
     Active Substance: ALENDRONATE SODIUM
     Dosage: 70 MG, ONCE WEEKLY

REACTIONS (4)
  - Pain in extremity [Not Recovered/Not Resolved]
  - Grip strength decreased [Not Recovered/Not Resolved]
  - Paraesthesia [Not Recovered/Not Resolved]
  - Drug ineffective [Unknown]

NARRATIVE: CASE EVENT DATE: 201807
